FAERS Safety Report 6470928-X (Version None)
Quarter: 2009Q4

REPORT INFORMATION
  Report Type: 
  Country: None (occurrence: None)
  Receive Date: 20091203
  Receipt Date: 20080801
  Transmission Date: 20100525
  Serious: Yes (Hospitalization, Other)
  Sender: FDA-Public Use
  Company Number: US-ELI_LILLY_AND_COMPANY-US200801004455

PATIENT
  Sex: Male

DRUGS (7)
  1. CYMBALTA [Suspect]
     Indication: DEPRESSION
     Dosage: 30 MG, UNK
     Dates: start: 20071101
  2. ALCOHOL [Concomitant]
  3. AMBIEN [Concomitant]
     Indication: INSOMNIA
     Dosage: 12.5 MG, EACH EVENING
  4. RITALIN [Concomitant]
     Dosage: 10 MG, 3/D
     Dates: start: 20071022
  5. OXYCODONE HCL [Concomitant]
  6. TORADOL [Concomitant]
     Dosage: 1 D/F, UNK
  7. ALBUTEROL [Concomitant]
     Dosage: 1 D/F, UNK

REACTIONS (19)
  - ABDOMINAL DISCOMFORT [None]
  - ALANINE AMINOTRANSFERASE INCREASED [None]
  - ANXIETY [None]
  - ASPARTATE AMINOTRANSFERASE INCREASED [None]
  - BLOOD PRESSURE DECREASED [None]
  - CELLULITIS [None]
  - CHILLS [None]
  - DELIRIUM [None]
  - DRUG INTERACTION [None]
  - GAIT DISTURBANCE [None]
  - HEADACHE [None]
  - HEPATIC CIRRHOSIS [None]
  - HEPATIC ENCEPHALOPATHY [None]
  - HEPATIC FAILURE [None]
  - PYREXIA [None]
  - RENAL FAILURE [None]
  - RHABDOMYOLYSIS [None]
  - SOFT TISSUE INJURY [None]
  - VENOUS THROMBOSIS LIMB [None]
